FAERS Safety Report 15589490 (Version 2)
Quarter: 2019Q1

REPORT INFORMATION
  Report Type: Report from Study
  Country: IL (occurrence: IL)
  Receive Date: 20181106
  Receipt Date: 20190228
  Transmission Date: 20190417
  Serious: Yes (Other)
  Sender: FDA-Public Use
  Company Number: IL-AMGEN-ISRSL2018154723

PATIENT
  Sex: Female

DRUGS (1)
  1. REPATHA [Suspect]
     Active Substance: EVOLOCUMAB
     Indication: HYPERCHOLESTEROLAEMIA
     Dosage: 140 MG, Q2WK
     Route: 065
     Dates: start: 20180624, end: 201811

REACTIONS (8)
  - Fatigue [Recovered/Resolved]
  - Depression [Unknown]
  - Influenza like illness [Recovered/Resolved]
  - Monoplegia [Recovered/Resolved]
  - Pain [Recovered/Resolved]
  - Nightmare [Unknown]
  - Cold sweat [Recovered/Resolved]
  - Dyspnoea [Unknown]

NARRATIVE: CASE EVENT DATE: 2018
